FAERS Safety Report 4401911-3 (Version None)
Quarter: 2004Q3

REPORT INFORMATION
  Report Type: 
  Country: None (occurrence: None)
  Receive Date: 20040720
  Receipt Date: 20040607
  Transmission Date: 20050211
  Serious: Yes (Death)
  Sender: FDA-Public Use
  Company Number: JP-BRISTOL-MYERS SQUIBB COMPANY-12608881

PATIENT
  Age: 61 Year
  Sex: Male

DRUGS (11)
  1. PARAPLATIN [Suspect]
     Indication: LUNG NEOPLASM MALIGNANT
     Route: 042
     Dates: start: 20040406, end: 20040406
  2. TAXOL [Suspect]
     Indication: LUNG NEOPLASM MALIGNANT
     Dosage: 1ST DOSE ON 06-APR
     Route: 042
     Dates: start: 20040420, end: 20040420
  3. RESTAMIN [Concomitant]
     Route: 048
     Dates: start: 20040406, end: 20040420
  4. NASEA [Concomitant]
     Route: 048
     Dates: start: 20040406, end: 20040420
  5. DECADRON [Concomitant]
     Route: 042
     Dates: start: 20040406, end: 20040420
  6. ZANTAC [Concomitant]
     Route: 042
     Dates: start: 20040406, end: 20040420
  7. PURSENNID [Concomitant]
     Route: 048
     Dates: start: 20040331, end: 20040602
  8. NORVASC [Concomitant]
     Route: 048
     Dates: start: 20040409, end: 20040521
  9. PRIMPERAN INJ [Concomitant]
     Route: 048
     Dates: start: 20040408, end: 20040602
  10. KADIAN [Concomitant]
     Dosage: PREV DOSING: 20 MG FROM 31-MAR TO 02-APR, THEN 40 MG FROM 03APR TO 05APR
     Route: 048
     Dates: start: 20040406, end: 20040602
  11. MAGNESIUM OXIDE [Concomitant]
     Route: 048
     Dates: start: 20040405, end: 20040602

REACTIONS (1)
  - PERICARDIAL EFFUSION [None]
